FAERS Safety Report 20649996 (Version 1)
Quarter: 2022Q1

REPORT INFORMATION
  Report Type: Spontaneous
  Country: FI (occurrence: FI)
  Receive Date: 20220329
  Receipt Date: 20220329
  Transmission Date: 20220423
  Serious: Yes (Hospitalization)
  Sender: FDA-Public Use
  Company Number: FI-NOVARTISPH-NVSC2022FI071120

PATIENT
  Age: 54 Year
  Sex: Female

DRUGS (1)
  1. ANAFRANIL [Suspect]
     Active Substance: CLOMIPRAMINE HYDROCHLORIDE
     Indication: Migraine prophylaxis
     Dosage: 150 MG, QD
     Route: 048
     Dates: start: 202112, end: 202202

REACTIONS (5)
  - Blood sodium decreased [Recovering/Resolving]
  - Epilepsy [Recovering/Resolving]
  - Asthenia [Recovering/Resolving]
  - Fatigue [Recovering/Resolving]
  - Off label use [Recovered/Resolved]

NARRATIVE: CASE EVENT DATE: 20211201
